FAERS Safety Report 5707255-1 (Version None)
Quarter: 2008Q2

REPORT INFORMATION
  Report Type: 
  Country: None (occurrence: None)
  Receive Date: 20080414
  Receipt Date: 20080414
  Transmission Date: 20081010
  Serious: No
  Sender: FDA-Public Use
  Company Number: None

PATIENT
  Age: 54 Year
  Sex: Female
  Weight: 63.5036 kg

DRUGS (2)
  1. SINGULAIR [Suspect]
     Indication: ASTHMA
     Dosage: 1 @ DAY EVERYDAY PO
     Route: 048
     Dates: start: 20071010, end: 20080411
  2. SINGULAIR [Suspect]
     Indication: MULTIPLE ALLERGIES
     Dosage: 1 @ DAY EVERYDAY PO
     Route: 048
     Dates: start: 20071010, end: 20080411

REACTIONS (15)
  - ABNORMAL DREAMS [None]
  - ASTHMA [None]
  - DEPRESSED MOOD [None]
  - DEPRESSION [None]
  - FEAR [None]
  - FEELING ABNORMAL [None]
  - HALLUCINATION, AUDITORY [None]
  - MOOD ALTERED [None]
  - MULTIPLE ALLERGIES [None]
  - NEGATIVISM [None]
  - PARANOIA [None]
  - SUICIDAL IDEATION [None]
  - THINKING ABNORMAL [None]
  - TINNITUS [None]
  - WHEEZING [None]
